FAERS Safety Report 20705701 (Version 1)
Quarter: 2022Q2

REPORT INFORMATION
  Report Type: Spontaneous
  Country: US (occurrence: None)
  Receive Date: 20220412
  Receipt Date: 20220412
  Transmission Date: 20220721
  Serious: Yes (Other)
  Sender: FDA-Public Use
  Company Number: None

PATIENT
  Age: 24 Year
  Sex: Female
  Weight: 65.25 kg

DRUGS (1)
  1. VILAZODONE [Suspect]
     Active Substance: VILAZODONE
     Indication: Major depression
     Dates: start: 20220209, end: 20220411

REACTIONS (1)
  - Female orgasmic disorder [None]

NARRATIVE: CASE EVENT DATE: 20220411
